FAERS Safety Report 6805510-5 (Version None)
Quarter: 2010Q2

REPORT INFORMATION
  Report Type: 
  Country: None (occurrence: None)
  Receive Date: 20100628
  Receipt Date: 20071127
  Transmission Date: 20101027
  Serious: No
  Sender: FDA-Public Use
  Company Number: US-PFIZER INC-2007099538

PATIENT
  Sex: Female
  Weight: 46.4 kg

DRUGS (3)
  1. GENOTROPIN [Suspect]
     Indication: OFF LABEL USE
     Dates: start: 20020101, end: 20070801
  2. GENOTROPIN [Suspect]
     Indication: OSTEOPOROSIS
  3. TERIPARATIDE [Concomitant]
     Dates: start: 20070701, end: 20071126

REACTIONS (2)
  - BONE PAIN [None]
  - WITHDRAWAL SYNDROME [None]
